FAERS Safety Report 9435568 (Version 2)
Quarter: 2013Q3

REPORT INFORMATION
  Report Type: Spontaneous
  Country: US (occurrence: US)
  Receive Date: 20130801
  Receipt Date: 20130809
  Transmission Date: 20140515
  Serious: Yes (Hospitalization, Other)
  Sender: FDA-Public Use
  Company Number: US-BAXTER-2013BAX030182

PATIENT
  Age: 51 Year
  Sex: Female

DRUGS (4)
  1. DIANEAL LOW CALCIUM [Suspect]
     Indication: PERITONEAL DIALYSIS
     Route: 033
     Dates: start: 201212
  2. DIANEAL LOW CALCIUM [Suspect]
     Indication: PERITONEAL DIALYSIS
     Route: 033
     Dates: start: 201212
  3. DACARBAZINE [Suspect]
     Indication: METASTATIC MALIGNANT MELANOMA
     Route: 042
     Dates: start: 201305
  4. DACARBAZINE [Suspect]
     Indication: NEOPLASM PROGRESSION

REACTIONS (5)
  - Metastatic malignant melanoma [Recovering/Resolving]
  - Neoplasm progression [Recovering/Resolving]
  - Haemoglobin abnormal [Recovered/Resolved]
  - Platelet count abnormal [Recovered/Resolved]
  - White blood cell count decreased [Recovered/Resolved]
